FAERS Safety Report 7841810-8 (Version None)
Quarter: 2011Q4

REPORT INFORMATION
  Report Type: 
  Country: None (occurrence: None)
  Receive Date: 20111025
  Receipt Date: 20111020
  Transmission Date: 20120403
  Serious: Yes (Hospitalization)
  Sender: FDA-Public Use
  Company Number: US-B.I. PHARMACEUTICALS,INC./RIDGEFIELD-2011-BP-24634BP

PATIENT
  Sex: Female

DRUGS (4)
  1. AMLODIPINE [Concomitant]
     Indication: ATRIAL FIBRILLATION
  2. IRON [Concomitant]
     Indication: SUPPLEMENTATION THERAPY
  3. PRADAXA [Suspect]
     Indication: ATRIAL FIBRILLATION
     Dosage: 300 MG
     Route: 048
     Dates: start: 20110601, end: 20111018
  4. OMEPRAZOLE [Concomitant]
     Indication: DYSPEPSIA

REACTIONS (1)
  - GASTROINTESTINAL HAEMORRHAGE [None]
